FAERS Safety Report 7501293-4 (Version None)
Quarter: 2011Q2

REPORT INFORMATION
  Report Type: 
  Country: None (occurrence: None)
  Receive Date: 20110524
  Receipt Date: 20110520
  Transmission Date: 20111010
  Serious: Yes (Other)
  Sender: FDA-Public Use
  Company Number: DE-PFIZER INC-2011109952

PATIENT
  Age: 54 Year
  Sex: Male

DRUGS (1)
  1. VENLAFAXINE [Suspect]
     Indication: MENTAL DISORDER
     Dosage: 150 MG, 1X/DAY

REACTIONS (1)
  - EOSINOPHILIC LEUKAEMIA [None]
